FAERS Safety Report 16015594 (Version 1)
Quarter: 2019Q1

REPORT INFORMATION
  Report Type: Spontaneous
  Country: FR (occurrence: FR)
  Receive Date: 20190228
  Receipt Date: 20190228
  Transmission Date: 20190418
  Serious: Yes (Other)
  Sender: FDA-Public Use
  Company Number: FR-TEVA-2019-FR-1017070

PATIENT
  Age: 38 Year
  Sex: Male

DRUGS (5)
  1. AMOXICILLINE [Suspect]
     Active Substance: AMOXICILLIN
     Route: 048
     Dates: start: 20140914, end: 20140920
  2. ACIDE CLAVULANIQUE [Suspect]
     Active Substance: CLAVULANIC ACID
     Route: 048
     Dates: start: 20140914, end: 20140920
  3. TAHOR [Suspect]
     Active Substance: ATORVASTATIN CALCIUM
     Dosage: 40 MILLIGRAM DAILY;
     Route: 048
     Dates: start: 20140914, end: 20140922
  4. HEPARINE SODIQUE [Suspect]
     Active Substance: HEPARIN SODIUM
     Route: 042
     Dates: start: 20140914, end: 20140919
  5. PLAVIX [Suspect]
     Active Substance: CLOPIDOGREL BISULFATE
     Route: 048
     Dates: start: 20140914, end: 20140919

REACTIONS (1)
  - Hepatocellular injury [Unknown]

NARRATIVE: CASE EVENT DATE: 20140915
